FAERS Safety Report 16033197 (Version 1)
Quarter: 2019Q1

REPORT INFORMATION
  Report Type: Spontaneous
  Country: US (occurrence: US)
  Receive Date: 20190305
  Receipt Date: 20190305
  Transmission Date: 20190418
  Serious: No
  Sender: FDA-Public Use
  Company Number: US-009507513-1902USA011492

PATIENT
  Sex: Female
  Weight: 81.65 kg

DRUGS (2)
  1. MAXALT [Suspect]
     Active Substance: RIZATRIPTAN BENZOATE
     Indication: MIGRAINE
     Dosage: UNK
     Route: 048
  2. MAXALT [Suspect]
     Active Substance: RIZATRIPTAN BENZOATE
     Dosage: SHE CUTS THEM IN HALF
     Route: 048

REACTIONS (3)
  - Wrong technique in product usage process [Unknown]
  - Migraine [Unknown]
  - Intentional product misuse [Unknown]
